FAERS Safety Report 5619597-9 (Version None)
Quarter: 2008Q1

REPORT INFORMATION
  Report Type: 
  Country: None (occurrence: None)
  Receive Date: 20080208
  Receipt Date: 20071205
  Transmission Date: 20080703
  Serious: No
  Sender: FDA-Public Use
  Company Number: US-BAYER-200716099NA

PATIENT
  Age: 33 Year
  Sex: Female
  Weight: 61 kg

DRUGS (4)
  1. MIRENA [Suspect]
     Indication: CONTRACEPTION
     Route: 015
     Dates: start: 20030101, end: 20071128
  2. TRIAMTERENE [Concomitant]
  3. TOPAMAX [Concomitant]
  4. CELEXA [Concomitant]

REACTIONS (6)
  - ABDOMINAL DISTENSION [None]
  - AFFECT LABILITY [None]
  - AMENORRHOEA [None]
  - BREAST TENDERNESS [None]
  - RASH [None]
  - WEIGHT INCREASED [None]
